FAERS Safety Report 17040145 (Version 1)
Quarter: 2019Q4

REPORT INFORMATION
  Report Type: Spontaneous
  Country: US (occurrence: US)
  Receive Date: 20191116
  Receipt Date: 20191116
  Transmission Date: 20200122
  Serious: No
  Sender: FDA-Public Use
  Company Number: US-TORRENT-00008524

PATIENT
  Age: 60 Year
  Sex: Female
  Weight: 83 kg

DRUGS (1)
  1. LOSARTAN. [Suspect]
     Active Substance: LOSARTAN
     Indication: HYPERTENSION
     Dates: start: 2018

REACTIONS (5)
  - Headache [Recovering/Resolving]
  - Off label use [Unknown]
  - Diarrhoea [Recovering/Resolving]
  - Pollakiuria [Not Recovered/Not Resolved]
  - Polyuria [Not Recovered/Not Resolved]

NARRATIVE: CASE EVENT DATE: 201901
